FAERS Safety Report 4324453-2 (Version None)
Quarter: 2004Q1

REPORT INFORMATION
  Report Type: 
  Country: None (occurrence: None)
  Receive Date: 20040326
  Receipt Date: 20040216
  Transmission Date: 20041129
  Serious: No
  Sender: FDA-Public Use
  Company Number: US-GLAXOSMITHKLINE-A0498334A

PATIENT
  Age: 45 Year
  Sex: Female

DRUGS (21)
  1. ADVAIR DISKUS 100/50 [Suspect]
     Indication: ASTHMA
     Dosage: 1PUFF TWICE PER DAY
     Route: 055
  2. NEXIUM [Concomitant]
  3. TOPAMAX [Concomitant]
  4. ACCOLATE [Concomitant]
  5. AMBIEN [Concomitant]
  6. CLONAZEPAM [Concomitant]
  7. LIPITOR [Concomitant]
  8. METHOCARBAMOL [Concomitant]
  9. NASONEX [Concomitant]
  10. NEURONTIN [Concomitant]
  11. TRAZODONE HCL [Concomitant]
  12. VIOXX [Concomitant]
  13. ZYRTEC-D 12 HOUR [Concomitant]
  14. ALBUTEROL [Concomitant]
  15. TYLENOL (CAPLET) [Concomitant]
  16. IBUPROFEN [Concomitant]
  17. PREDNISONE [Concomitant]
  18. ZITHROMAX [Concomitant]
  19. COUGH SYRUP [Concomitant]
  20. DIFLUCAN [Concomitant]
  21. MULTI-VITAMIN [Concomitant]

REACTIONS (8)
  - DRY THROAT [None]
  - HOARSENESS [None]
  - LOWER RESPIRATORY TRACT INFECTION [None]
  - ORAL CANDIDIASIS [None]
  - PHARYNGOLARYNGEAL PAIN [None]
  - SINUSITIS [None]
  - VOCAL CORD DISORDER [None]
  - WEIGHT DECREASED [None]
